FAERS Safety Report 23986595 (Version 3)
Quarter: 2025Q2

REPORT INFORMATION
  Report Type: Spontaneous
  Country: DE (occurrence: DE)
  Receive Date: 20240618
  Receipt Date: 20250401
  Transmission Date: 20250717
  Serious: Yes (Death, Life-Threatening, Hospitalization)
  Sender: ACCORD
  Company Number: DE-MLMSERVICE-20240530-PI081102-00306-2

PATIENT
  Age: 4 Month
  Sex: Male

DRUGS (6)
  1. TACROLIMUS [Suspect]
     Active Substance: TACROLIMUS
     Indication: Immunosuppression
  2. BASILIXIMAB [Suspect]
     Active Substance: BASILIXIMAB
     Indication: Immunosuppression
  3. SULFAMETHOXAZOLE\TRIMETHOPRIM [Concomitant]
     Active Substance: SULFAMETHOXAZOLE\TRIMETHOPRIM
     Indication: Antibiotic therapy
  4. LINEZOLID [Concomitant]
     Active Substance: LINEZOLID
     Indication: Antibiotic therapy
  5. MEROPENEM [Concomitant]
     Active Substance: MEROPENEM
     Indication: Antibiotic therapy
  6. CASPOFUNGIN [Concomitant]
     Active Substance: CASPOFUNGIN
     Indication: Antifungal treatment

REACTIONS (8)
  - Septic shock [Fatal]
  - Systemic mycosis [Fatal]
  - Fungal infection [Fatal]
  - Intestinal haemorrhage [Fatal]
  - Necrosis [Fatal]
  - Disseminated intravascular coagulation [Fatal]
  - Aspergillus infection [Fatal]
  - Mucosal haemorrhage [Fatal]
